FAERS Safety Report 8484954-2 (Version None)
Quarter: 2012Q3

REPORT INFORMATION
  Report Type: 
  Country: None (occurrence: None)
  Receive Date: 20120703
  Receipt Date: 20120628
  Transmission Date: 20120928
  Serious: No
  Sender: FDA-Public Use
  Company Number: US-PFIZER INC-2012156510

PATIENT
  Sex: Female

DRUGS (3)
  1. CHANTIX [Suspect]
     Indication: SMOKING CESSATION THERAPY
     Dosage: 0.5 MG, DAILY
     Route: 048
     Dates: start: 20120501, end: 20120626
  2. ATENOLOL [Concomitant]
     Indication: BLOOD PRESSURE ABNORMAL
     Dosage: 100 MG, DAILY
  3. TRIAMTERENE [Concomitant]
     Indication: DIURETIC THERAPY
     Dosage: 37.5 MG, UNK

REACTIONS (2)
  - CONFUSIONAL STATE [None]
  - RASH [None]
